FAERS Safety Report 9846612 (Version 4)
Quarter: 2014Q1

REPORT INFORMATION
  Report Type: Spontaneous
  Country: DK (occurrence: DK)
  Receive Date: 20140127
  Receipt Date: 20140312
  Transmission Date: 20141002
  Serious: Yes (Other)
  Sender: FDA-Public Use
  Company Number: DK-GLAXOSMITHKLINE-B0707871A

PATIENT
  Age: 49 Year
  Sex: Male
  Weight: 85 kg

DRUGS (2)
  1. LAMOTRIGINE [Suspect]
     Indication: EPILEPSY
     Dosage: 700MG PER DAY
     Route: 065
     Dates: start: 2005, end: 2010
  2. PLENDIL [Concomitant]
     Indication: HYPERTENSION
     Route: 065
     Dates: start: 1994

REACTIONS (5)
  - Chronic obstructive pulmonary disease [Unknown]
  - Diarrhoea [Unknown]
  - Somnolence [Unknown]
  - Dyspnoea [Unknown]
  - Lethargy [Unknown]
